FAERS Safety Report 6437566-6 (Version None)
Quarter: 2009Q4

REPORT INFORMATION
  Report Type: 
  Country: None (occurrence: None)
  Receive Date: 20091112
  Receipt Date: 20091104
  Transmission Date: 20100525
  Serious: Yes (Other)
  Sender: FDA-Public Use
  Company Number: US-JNJCH-2009029274

PATIENT
  Age: 69 Year
  Sex: Female
  Weight: 77.6 kg

DRUGS (5)
  1. ASPIRIN [Suspect]
     Indication: ARTHRALGIA
     Dosage: TEXT:UNKNOWN
     Route: 048
  2. OMEPRAZOLE [Concomitant]
     Indication: GASTRIC ULCER
     Dosage: TEXT:40MG / 1X DAILY
     Route: 065
  3. ZETIA [Concomitant]
     Indication: BLOOD CHOLESTEROL INCREASED
     Dosage: TEXT:10MG / 1X DAILY
     Route: 065
  4. AMLODIPINE [Concomitant]
     Indication: HYPERTENSION
     Dosage: TEXT:5MG / 1X DAILY
     Route: 065
  5. BISOPROLOL FUMARATE AND HYDROCHLOROTHIAZIDE [Concomitant]
     Indication: HYPERTENSION
     Dosage: TEXT:5 / 6.25MG / 1X DAILY
     Route: 065

REACTIONS (4)
  - DISCOMFORT [None]
  - DRUG HYPERSENSITIVITY [None]
  - GASTRIC ULCER [None]
  - VOMITING [None]
